FAERS Safety Report 15652971 (Version 1)
Quarter: 2018Q4

REPORT INFORMATION
  Report Type: Report from Study
  Country: TR (occurrence: TR)
  Receive Date: 20181123
  Receipt Date: 20181123
  Transmission Date: 20190205
  Serious: Yes (Death)
  Sender: FDA-Public Use
  Company Number: PHHY2018TR162735

PATIENT

DRUGS (2)
  1. LEE011 [Suspect]
     Active Substance: RIBOCICLIB
     Indication: NEOPLASM
     Route: 048
  2. LEE011 [Suspect]
     Active Substance: RIBOCICLIB
     Indication: LYMPHOMA

REACTIONS (1)
  - Death [Fatal]
